FAERS Safety Report 5915869-9 (Version None)
Quarter: 2008Q4

REPORT INFORMATION
  Report Type: 
  Country: None (occurrence: None)
  Receive Date: 20081010
  Receipt Date: 20080930
  Transmission Date: 20090506
  Serious: Yes (Other)
  Sender: FDA-Public Use
  Company Number: US-PFIZER INC-2008083570

PATIENT
  Sex: Female
  Weight: 81.6 kg

DRUGS (10)
  1. CHANTIX [Suspect]
     Indication: SMOKING CESSATION THERAPY
     Dates: start: 20080312
  2. WELLBUTRIN [Suspect]
     Indication: ANGER
     Dates: start: 20080101
  3. PAROXETINE HCL [Concomitant]
  4. ALL OTHER THERAPEUTIC PRODUCTS [Concomitant]
  5. ASTELIN [Concomitant]
  6. FLONASE [Concomitant]
  7. SPIRIVA [Concomitant]
  8. ZYRTEC [Concomitant]
  9. VICODIN [Concomitant]
  10. IBUPROFEN [Concomitant]

REACTIONS (7)
  - ANGER [None]
  - BIOPSY [None]
  - DRUG ADMINISTRATION ERROR [None]
  - DRUG INEFFECTIVE [None]
  - FORMICATION [None]
  - LUNG NEOPLASM MALIGNANT [None]
  - NAUSEA [None]
